FAERS Safety Report 5727035-0 (Version None)
Quarter: 2008Q2

REPORT INFORMATION
  Report Type: 
  Country: None (occurrence: None)
  Receive Date: 20080505
  Receipt Date: 20080404
  Transmission Date: 20081010
  Serious: No
  Sender: FDA-Public Use
  Company Number: US-BAYER-200819554NA

PATIENT
  Age: 40 Year
  Sex: Female
  Weight: 64 kg

DRUGS (1)
  1. MIRENA [Suspect]
     Indication: CONTRACEPTION
     Route: 015
     Dates: start: 20080325, end: 20080404

REACTIONS (4)
  - INTRA-UTERINE CONTRACEPTIVE DEVICE EXPELLED [None]
  - METRORRHAGIA [None]
  - UTERINE SPASM [None]
  - VAGINAL HAEMORRHAGE [None]
